FAERS Safety Report 13723370 (Version 1)
Quarter: 2017Q3

REPORT INFORMATION
  Report Type: Spontaneous
  Country: US (occurrence: US)
  Receive Date: 20170706
  Receipt Date: 20170706
  Transmission Date: 20171127
  Serious: No
  Sender: FDA-Public Use
  Company Number: US-JNJFOC-20170208761

PATIENT
  Sex: Female
  Weight: 62.6 kg

DRUGS (3)
  1. LEVAQUIN [Suspect]
     Active Substance: LEVOFLOXACIN
     Indication: BRONCHITIS
     Route: 048
  2. LEVAQUIN [Suspect]
     Active Substance: LEVOFLOXACIN
     Indication: BRONCHITIS
     Dosage: FOR 5 DAYS
     Route: 048
     Dates: start: 20170203, end: 20170208
  3. LEVAQUIN [Suspect]
     Active Substance: LEVOFLOXACIN
     Indication: BRONCHITIS
     Dosage: ABOUT 9 YEARS AGO
     Route: 048

REACTIONS (2)
  - Tendonitis [Recovered/Resolved]
  - Drug ineffective [Unknown]
